FAERS Safety Report 19740295 (Version 1)
Quarter: 2021Q3

REPORT INFORMATION
  Report Type: Spontaneous
  Country: FR (occurrence: FR)
  Receive Date: 20210824
  Receipt Date: 20210824
  Transmission Date: 20211014
  Serious: Yes (Hospitalization)
  Sender: FDA-Public Use
  Company Number: FR-MYLANLABS-2021M1053831

PATIENT
  Age: 66 Year
  Sex: Female
  Weight: 76.5 kg

DRUGS (2)
  1. VENLAFAXINE [Suspect]
     Active Substance: VENLAFAXINE HYDROCHLORIDE
     Indication: PRODUCT USED FOR UNKNOWN INDICATION
     Dosage: UNK, NP
     Route: 048
     Dates: start: 20210131, end: 20210131
  2. ALPRAZOLAM. [Suspect]
     Active Substance: ALPRAZOLAM
     Indication: PRODUCT USED FOR UNKNOWN INDICATION
     Dosage: UNK, NP
     Route: 048
     Dates: start: 20210131, end: 20210131

REACTIONS (4)
  - Electrocardiogram QT prolonged [Recovered/Resolved]
  - Confusional state [Recovered/Resolved]
  - Intentional overdose [Unknown]
  - Poisoning deliberate [Recovered/Resolved]

NARRATIVE: CASE EVENT DATE: 20210131
